FAERS Safety Report 5495734-4 (Version None)
Quarter: 2007Q4

REPORT INFORMATION
  Report Type: 
  Country: None (occurrence: None)
  Receive Date: 20071025
  Receipt Date: 20061011
  Transmission Date: 20080405
  Serious: No
  Sender: FDA-Public Use
  Company Number: A0623244A

PATIENT
  Age: 59 Year
  Sex: Female

DRUGS (11)
  1. ADVAIR DISKUS 100/50 [Suspect]
     Indication: ASTHMA
     Dosage: 1PUFF TWICE PER DAY
     Route: 055
     Dates: start: 20061001
  2. MULTI-VITAMIN [Concomitant]
  3. LORATADINE [Concomitant]
  4. PRILOSEC [Concomitant]
  5. EVISTA [Concomitant]
  6. PREMARIN [Concomitant]
  7. NASONEX [Concomitant]
  8. ALBUTEROL [Concomitant]
  9. ASCORBIC ACID [Concomitant]
  10. GLUCOSAMINE CHONDRITIN [Concomitant]
  11. DELSYM [Concomitant]

REACTIONS (2)
  - BURNING SENSATION [None]
  - PRURITUS [None]
